FAERS Safety Report 20000853 (Version 2)
Quarter: 2021Q4

REPORT INFORMATION
  Report Type: Spontaneous
  Country: JP (occurrence: JP)
  Receive Date: 20211027
  Receipt Date: 20211117
  Transmission Date: 20220303
  Serious: Yes (Hospitalization, Other)
  Sender: FDA-Public Use
  Company Number: JP-TEVA-2021-JP-1968881

PATIENT
  Age: 82 Year
  Sex: Female

DRUGS (11)
  1. ACYCLOVIR [Suspect]
     Active Substance: ACYCLOVIR
     Indication: Herpes zoster
     Dosage: 500 MILLIGRAM DAILY;
     Route: 050
  2. CARBOCYSTEINE [Suspect]
     Active Substance: CARBOCYSTEINE
     Indication: Product used for unknown indication
     Route: 065
  3. ROSUVASTATIN [Suspect]
     Active Substance: ROSUVASTATIN
     Indication: Product used for unknown indication
     Route: 065
  4. PREDONINE [Suspect]
     Active Substance: PREDNISOLONE
     Indication: Polymyalgia rheumatica
     Dosage: INITIAL DOSE UNKNOWN
     Route: 065
     Dates: start: 201906
  5. PREDONINE [Suspect]
     Active Substance: PREDNISOLONE
     Indication: Polymyalgia rheumatica
     Dosage: 5 MILLIGRAM DAILY;
     Route: 065
  6. RHEUMATREX [Suspect]
     Active Substance: METHOTREXATE SODIUM
     Indication: Polymyalgia rheumatica
     Route: 048
     Dates: start: 202010
  7. ACTEMRA [Suspect]
     Active Substance: TOCILIZUMAB
     Indication: Polymyalgia rheumatica
     Route: 050
     Dates: start: 202002
  8. POLAPREZINC [Suspect]
     Active Substance: POLAPREZINC
     Indication: Product used for unknown indication
     Route: 065
  9. CELECOXIB [Suspect]
     Active Substance: CELECOXIB
     Indication: Product used for unknown indication
     Route: 065
  10. CYMBALTA [Suspect]
     Active Substance: DULOXETINE HYDROCHLORIDE
     Indication: Product used for unknown indication
     Route: 065
  11. LEUCOVORIN [Concomitant]
     Active Substance: LEUCOVORIN
     Indication: Supplementation therapy
     Route: 065

REACTIONS (5)
  - Herpes zoster [Recovered/Resolved]
  - Herpes simplex [Recovering/Resolving]
  - Drug-induced liver injury [Recovered/Resolved]
  - Agranulocytosis [Recovered/Resolved]
  - Oral herpes [Recovering/Resolving]

NARRATIVE: CASE EVENT DATE: 20200101
